FAERS Safety Report 21643137 (Version 2)
Quarter: 2023Q1

REPORT INFORMATION
  Report Type: Report from Study
  Country: US (occurrence: US)
  Receive Date: 20221125
  Receipt Date: 20230206
  Transmission Date: 20230417
  Serious: Yes (Hospitalization, Other)
  Sender: FDA-Public Use
  Company Number: US-ABBVIE-4213476

PATIENT
  Sex: Male

DRUGS (1)
  1. IMBRUVICA [Suspect]
     Active Substance: IBRUTINIB
     Indication: Chronic lymphocytic leukaemia
     Route: 048
     Dates: start: 20180721

REACTIONS (5)
  - Pneumonia [Unknown]
  - Cardiac failure congestive [Unknown]
  - Sepsis [Unknown]
  - Tracheostomy [Unknown]
  - Cellulitis [Unknown]
